FAERS Safety Report 4600894-0 (Version None)
Quarter: 2005Q1

REPORT INFORMATION
  Report Type: 
  Country: None (occurrence: None)
  Receive Date: 20050127
  Receipt Date: 20041213
  Transmission Date: 20050727
  Serious: Yes (Hospitalization)
  Sender: FDA-Public Use
  Company Number: USA040977082

PATIENT
  Age: 58 Year
  Sex: Female
  Weight: 69 kg

DRUGS (11)
  1. STRATTERA [Suspect]
     Indication: ATTENTION DEFICIT/HYPERACTIVITY DISORDER
     Dosage: 80 MG
     Dates: start: 20040801
  2. ZOLOFT [Concomitant]
  3. VIOXX [Concomitant]
  4. FEMHRT [Concomitant]
  5. GLUCOSAMINE CHONDROITIN [Concomitant]
  6. CALCIUM GLUCONATE [Concomitant]
  7. MAGNESIUM (MAGNESIUM ASPARTATE) [Concomitant]
  8. VITAMINS NOS [Concomitant]
  9. FISH OIL [Concomitant]
  10. VITAMIN B COMPLEX CAP [Concomitant]
  11. ASPIRIN [Concomitant]

REACTIONS (7)
  - BLOOD PRESSURE DECREASED [None]
  - DIARRHOEA [None]
  - DYSPNOEA [None]
  - HYPERHIDROSIS [None]
  - PRURITUS [None]
  - URTICARIA [None]
  - VAGINAL HAEMORRHAGE [None]
